FAERS Safety Report 14923252 (Version 1)
Quarter: 2018Q2

REPORT INFORMATION
  Report Type: Spontaneous
  Country: FR (occurrence: FR)
  Receive Date: 20180522
  Receipt Date: 20180522
  Transmission Date: 20180711
  Serious: Yes (Other)
  Sender: FDA-Public Use
  Company Number: FR-MERCK KGAA-2048227

PATIENT
  Age: 51 Year
  Sex: Female

DRUGS (2)
  1. NOVOTHYROX [Suspect]
     Active Substance: LEVOTHYROXINE SODIUM
     Indication: PRODUCT USED FOR UNKNOWN INDICATION
     Dates: end: 20170910
  2. LEVOTHYROXINE SODIUM. [Suspect]
     Active Substance: LEVOTHYROXINE SODIUM

REACTIONS (30)
  - Paraesthesia [Recovered/Resolved]
  - Pain [Not Recovered/Not Resolved]
  - Anxiety [None]
  - Toothache [None]
  - Disturbance in attention [None]
  - Protein total decreased [None]
  - Blood thyroid stimulating hormone decreased [Recovered/Resolved]
  - Blood potassium decreased [None]
  - Headache [Recovered/Resolved]
  - Drug-induced liver injury [None]
  - Hospitalisation [None]
  - Irritability [None]
  - Stress [None]
  - Arthralgia [None]
  - Asthenia [Not Recovered/Not Resolved]
  - Muscle spasms [None]
  - Hot flush [None]
  - Myalgia [Recovered/Resolved]
  - Dizziness [None]
  - Hyperhidrosis [None]
  - Alopecia [None]
  - Insomnia [None]
  - Fatigue [None]
  - Impaired work ability [None]
  - Decreased activity [None]
  - Somnolence [None]
  - Psychiatric symptom [None]
  - Gamma-glutamyltransferase increased [None]
  - Blood glucose increased [None]
  - Pruritus [None]

NARRATIVE: CASE EVENT DATE: 20170726
